FAERS Safety Report 21448417 (Version 3)
Quarter: 2022Q4

REPORT INFORMATION
  Report Type: Spontaneous
  Country: CA (occurrence: CA)
  Receive Date: 20221013
  Receipt Date: 20221025
  Transmission Date: 20230113
  Serious: Yes (Hospitalization, Other)
  Sender: FDA-Public Use
  Company Number: CA-CELLTRION INC.-2022CA012633

PATIENT

DRUGS (4)
  1. INFLECTRA [Suspect]
     Active Substance: INFLIXIMAB-DYYB
     Indication: Crohn^s disease
     Dosage: 10 MG/KG, WEEK 0 DOSE (700 MG)
     Route: 042
     Dates: start: 20220710, end: 20220710
  2. INFLECTRA [Suspect]
     Active Substance: INFLIXIMAB-DYYB
     Dosage: 5 MG/KG, WEEKS0,2, 6, THEN Q8WEEKS -HOSPITAL START
     Route: 042
     Dates: start: 20220710
  3. INFLECTRA [Suspect]
     Active Substance: INFLIXIMAB-DYYB
     Dosage: 5 MG/KG, WEEK 2 DOSE
     Route: 042
     Dates: start: 20220719, end: 20220719
  4. INFLECTRA [Suspect]
     Active Substance: INFLIXIMAB-DYYB
     Dosage: 5 MG/KG, WEEKS 0,2, 6, THEN Q8WEEKS -HOSPITAL START
     Route: 042
     Dates: start: 20220808

REACTIONS (6)
  - Fall [Unknown]
  - Colectomy [Unknown]
  - Off label use [Unknown]
  - Hypotension [Unknown]
  - Confusional state [Unknown]
  - Amnesia [Unknown]

NARRATIVE: CASE EVENT DATE: 20220101
